FAERS Safety Report 26198606 (Version 1)
Quarter: 2025Q4

REPORT INFORMATION
  Report Type: Spontaneous
  Country: US (occurrence: US)
  Receive Date: 20251224
  Receipt Date: 20251224
  Transmission Date: 20260118
  Serious: No
  Sender: SANOFI AVENTIS
  Company Number: US-SA-2025SA382310

PATIENT
  Age: 41 Year
  Sex: Female

DRUGS (3)
  1. DUPIXENT [Suspect]
     Active Substance: DUPILUMAB
     Indication: Eczema
     Dosage: 600 MG, 1X
     Route: 058
     Dates: start: 20251020, end: 20251020
  2. DUPIXENT [Suspect]
     Active Substance: DUPILUMAB
     Indication: Eosinophilic oesophagitis
     Dosage: 300 MG, QOW
     Route: 058
     Dates: start: 202511
  3. CORTISONE [Concomitant]
     Active Substance: CORTISONE

REACTIONS (7)
  - Pruritus [Unknown]
  - Sinusitis [Unknown]
  - Nasal congestion [Unknown]
  - Throat irritation [Unknown]
  - Paranasal sinus discomfort [Unknown]
  - Sinus pain [Unknown]
  - Nausea [Unknown]

NARRATIVE: CASE EVENT DATE: 20250101
